FAERS Safety Report 5478502-9 (Version None)
Quarter: 2007Q4

REPORT INFORMATION
  Report Type: 
  Country: None (occurrence: None)
  Receive Date: 20071005
  Receipt Date: 20071004
  Transmission Date: 20080405
  Serious: Yes (Other)
  Sender: FDA-Public Use
  Company Number: US-GENENTECH-245393

PATIENT
  Sex: Male

DRUGS (6)
  1. LUCENTIS [Suspect]
     Indication: MACULAR DEGENERATION
     Dosage: UNK, UNKNOWN
     Route: 065
     Dates: start: 20060801
  2. LUCENTIS [Suspect]
     Dosage: UNK, UNKNOWN
     Route: 065
     Dates: start: 20061101
  3. LUCENTIS [Suspect]
     Dosage: UNK, UNKNOWN
     Route: 065
     Dates: start: 20061201
  4. PRESERVISION NOS [Concomitant]
     Indication: MACULAR DEGENERATION
     Dosage: UNK, UNKNOWN
     Route: 065
     Dates: end: 20061201
  5. VITAMINS [Concomitant]
     Indication: MACULAR DEGENERATION
  6. MINERAL TAB [Concomitant]
     Indication: MACULAR DEGENERATION

REACTIONS (1)
  - PROSTATE CANCER [None]
